FAERS Safety Report 21514122 (Version 3)
Quarter: 2022Q4

REPORT INFORMATION
  Report Type: Spontaneous
  Country: JP (occurrence: JP)
  Receive Date: 20221027
  Receipt Date: 20221216
  Transmission Date: 20230113
  Serious: Yes (Hospitalization)
  Sender: FDA-Public Use
  Company Number: JP-SA-SAC20221027000074

PATIENT
  Age: 13 Month
  Sex: Male

DRUGS (5)
  1. LEVOCETIRIZINE [Suspect]
     Active Substance: LEVOCETIRIZINE
     Indication: Rhinitis allergic
     Dosage: 2.5 MILLILITER, 2X/DAY (BID)
     Route: 048
     Dates: start: 20221014, end: 20221015
  2. METHYLEPHEDRINE HYDROCHLORIDE, DL- [Suspect]
     Active Substance: METHYLEPHEDRINE HYDROCHLORIDE, DL-
     Indication: Product used for unknown indication
     Dosage: 0.25 MG TID AFTER A MEAL
     Route: 048
     Dates: start: 20221014, end: 20221015
  3. AMBROXOL HYDROCHLORIDE [Concomitant]
     Active Substance: AMBROXOL HYDROCHLORIDE
     Dosage: UNK
     Route: 065
  4. METHY F [Concomitant]
     Dosage: UNK
     Route: 065
  5. TRANSAMIN [Concomitant]
     Active Substance: TRANEXAMIC ACID
     Dosage: UNK
     Route: 065

REACTIONS (2)
  - Nystagmus [Recovered/Resolved]
  - Eye movement disorder [Recovered/Resolved]

NARRATIVE: CASE EVENT DATE: 20221015
